FAERS Safety Report 25686843 (Version 2)
Quarter: 2025Q3

REPORT INFORMATION
  Report Type: Spontaneous
  Country: US (occurrence: US)
  Receive Date: 20250816
  Receipt Date: 20250826
  Transmission Date: 20251021
  Serious: Yes (Other)
  Sender: AUROBINDO
  Company Number: US-AUROBINDO-AUR-APL-2025-041041

PATIENT
  Age: 4 Year
  Sex: Female

DRUGS (2)
  1. CAFFEINE CITRATE [Suspect]
     Active Substance: CAFFEINE CITRATE
     Indication: Product used for unknown indication
     Route: 065
  2. SODIUM BENZOATE [Concomitant]
     Active Substance: SODIUM BENZOATE
     Indication: Product used for unknown indication
     Route: 065

REACTIONS (7)
  - Rhabdomyolysis [Unknown]
  - Seizure [Unknown]
  - Hypokalaemia [Unknown]
  - Overdose [Unknown]
  - Tachycardia [Unknown]
  - Factitious disorder [Unknown]
  - Developmental delay [Unknown]
